FAERS Safety Report 5055866-1 (Version None)
Quarter: 2006Q3

REPORT INFORMATION
  Report Type: 
  Country: None (occurrence: None)
  Receive Date: 20060717
  Receipt Date: 20060707
  Transmission Date: 20061208
  Serious: Yes (Other)
  Sender: FDA-Public Use
  Company Number: 2006084213

PATIENT
  Age: 59 Year
  Sex: Male
  Weight: 72.5755 kg

DRUGS (1)
  1. ROGAINE [Suspect]
     Indication: ALOPECIA
     Dosage: RECOMMENDED DOSAGE ONCE A DAY, TOPICAL
     Route: 061
     Dates: start: 20010101

REACTIONS (2)
  - BLOOD PRESSURE INCREASED [None]
  - HERNIA [None]
